FAERS Safety Report 9908875 (Version 1)
Quarter: 2014Q1

REPORT INFORMATION
  Report Type: Spontaneous
  Country: CO (occurrence: CO)
  Receive Date: 20140219
  Receipt Date: 20140219
  Transmission Date: 20141002
  Serious: Yes (Death)
  Sender: FDA-Public Use
  Company Number: CO-ASTELLAS-2014EU001468

PATIENT
  Age: 60 Year
  Sex: Male

DRUGS (4)
  1. PROGRAF XL [Suspect]
     Indication: HEART TRANSPLANT
     Dosage: 2 MG/ 24 HR
     Route: 048
     Dates: start: 20100204
  2. PREDNISONE [Concomitant]
     Dosage: UNK
     Route: 065
  3. MYCOPHENOLATE MOFETIL [Concomitant]
     Dosage: UNK
     Route: 065
  4. LOVASTATIN [Concomitant]
     Dosage: UNK
     Route: 065

REACTIONS (1)
  - Unevaluable event [Fatal]
